FAERS Safety Report 5461461-2 (Version None)
Quarter: 2007Q3

REPORT INFORMATION
  Report Type: 
  Country: None (occurrence: None)
  Receive Date: 20070920
  Receipt Date: 20061018
  Transmission Date: 20080115
  Serious: No
  Sender: FDA-Public Use
  Company Number: A0623866A

PATIENT
  Age: 42 Year
  Sex: Male

DRUGS (1)
  1. ABREVA [Suspect]
     Dates: start: 20060930, end: 20061015

REACTIONS (2)
  - DRUG INEFFECTIVE [None]
  - INTENTIONAL DRUG MISUSE [None]
